FAERS Safety Report 4450861-5 (Version None)
Quarter: 2004Q3

REPORT INFORMATION
  Report Type: 
  Country: None (occurrence: None)
  Receive Date: 20040916
  Receipt Date: 20011002
  Transmission Date: 20050211
  Serious: Yes (Disabling, Other)
  Sender: FDA-Public Use
  Company Number: US-BRISTOL-MYERS SQUIBB COMPANY-11471562

PATIENT
  Age: 4 Decade
  Sex: Female

DRUGS (10)
  1. STADOL [Suspect]
     Indication: MIGRAINE
     Route: 045
  2. STADOL [Suspect]
     Indication: MIGRAINE
     Dosage: ROUTE: IV AND IM
     Route: 042
  3. PHENERGAN HCL [Concomitant]
  4. NUBAIN [Concomitant]
  5. AMITRIPTYLINE HCL [Concomitant]
  6. ACETAMINOPHEN [Concomitant]
  7. IBUPROFEN [Concomitant]
  8. RANITIDINE [Concomitant]
  9. NORTRIPTYLINE HCL [Concomitant]
  10. GUAIFENESIN [Concomitant]

REACTIONS (2)
  - DEPENDENCE [None]
  - DRUG WITHDRAWAL SYNDROME [None]
